FAERS Safety Report 8561201-4 (Version None)
Quarter: 2012Q3

REPORT INFORMATION
  Report Type: 
  Country: None (occurrence: None)
  Receive Date: 20120802
  Receipt Date: 20110801
  Transmission Date: 20120928
  Serious: No
  Sender: FDA-Public Use
  Company Number: US-BRISTOL-MYERS SQUIBB COMPANY-15941701

PATIENT
  Age: 48 Year
  Sex: Female

DRUGS (1)
  1. ESTRACE [Suspect]

REACTIONS (1)
  - DRUG EFFECT DECREASED [None]
